FAERS Safety Report 23658740 (Version 2)
Quarter: 2024Q2

REPORT INFORMATION
  Report Type: Report from Study
  Country: US (occurrence: US)
  Receive Date: 20240321
  Receipt Date: 20240524
  Transmission Date: 20240716
  Serious: Yes (Other)
  Sender: FDA-Public Use
  Company Number: US-002147023-NVSC2024US061068

PATIENT
  Age: 7 Year
  Sex: Male

DRUGS (1)
  1. ILARIS [Suspect]
     Active Substance: CANAKINUMAB
     Indication: Pyrexia
     Dosage: 90 MG, QMO
     Route: 058
     Dates: start: 20220107

REACTIONS (3)
  - Pneumonia [Unknown]
  - Pyrexia [Unknown]
  - Influenza B virus test positive [Unknown]

NARRATIVE: CASE EVENT DATE: 20240303
